FAERS Safety Report 7951948-2 (Version None)
Quarter: 2011Q4

REPORT INFORMATION
  Report Type: 
  Country: None (occurrence: None)
  Receive Date: 20111201
  Receipt Date: 20111121
  Transmission Date: 20120403
  Serious: Yes (Hospitalization, Other)
  Sender: FDA-Public Use
  Company Number: BE-PFIZER INC-2011289807

PATIENT
  Age: 74 Year
  Sex: Male
  Weight: 85 kg

DRUGS (7)
  1. CORDARONE [Concomitant]
     Indication: HYPERTENSION
     Dosage: 200 MG, DAILY
  2. PANTOPRAZOLE [Suspect]
     Dosage: 40 MG DAILY
     Route: 048
     Dates: start: 20110101, end: 20110101
  3. PANTOPRAZOLE [Suspect]
     Dosage: 40 MG, DAILY
     Route: 048
     Dates: start: 20110601, end: 20110603
  4. ALLOPURINOL [Concomitant]
     Dosage: 100 MG, DAILY
  5. EXFORGE [Concomitant]
     Indication: HYPERTENSION
     Dosage: 10 MG, UNK
  6. ALDACTAZIDE [Concomitant]
     Indication: HYPERTENSION
     Dosage: 1 DF DAILY
  7. MINIPRESS [Concomitant]
     Indication: HYPERTENSION
     Dosage: 1 MG, 2X/DAY

REACTIONS (1)
  - ILEUS [None]
